FAERS Safety Report 7714811-8 (Version None)
Quarter: 2011Q3

REPORT INFORMATION
  Report Type: 
  Country: None (occurrence: None)
  Receive Date: 20110810
  Receipt Date: 20110601
  Transmission Date: 20111222
  Serious: No
  Sender: FDA-Public Use
  Company Number: 1000021362

PATIENT
  Sex: Male

DRUGS (1)
  1. SAVELLA [Suspect]

REACTIONS (1)
  - TESTICULAR PAIN [None]
